FAERS Safety Report 9821994 (Version 2)
Quarter: 2014Q1

REPORT INFORMATION
  Report Type: Spontaneous
  Country: US (occurrence: US)
  Receive Date: 20140116
  Receipt Date: 20140310
  Transmission Date: 20141002
  Serious: Yes (Death, Life-Threatening, Disabling, Other)
  Sender: FDA-Public Use
  Company Number: US-009507513-1401USA006797

PATIENT
  Sex: Female
  Weight: 63.49 kg

DRUGS (14)
  1. JANUMET [Suspect]
     Indication: TYPE 2 DIABETES MELLITUS
     Dosage: 50-500MG, BID
     Route: 048
     Dates: start: 20100119, end: 20100201
  2. JANUMET [Suspect]
     Dosage: 50-1000MG, BID
     Route: 048
     Dates: start: 20100201, end: 20111205
  3. JANUVIA [Suspect]
     Indication: TYPE 2 DIABETES MELLITUS
     Dosage: 100 MG, QD
     Route: 048
     Dates: start: 20111205
  4. METFORMIN [Concomitant]
     Indication: TYPE 2 DIABETES MELLITUS
     Dosage: 500 MG, BID
     Route: 048
  5. ACTOS [Concomitant]
     Indication: TYPE 2 DIABETES MELLITUS
     Dosage: 45 DF, UNK
     Dates: start: 201001
  6. ZOCOR [Concomitant]
     Indication: TYPE V HYPERLIPIDAEMIA
  7. GLUCOPHAGE [Concomitant]
     Indication: TYPE 2 DIABETES MELLITUS
  8. VITAMIN D (UNSPECIFIED) [Concomitant]
     Dosage: 50000 IU, QW
     Route: 048
  9. PRINIVIL [Concomitant]
     Dosage: 40 MG, QD
     Route: 048
  10. NORVASC [Concomitant]
     Dosage: 5 MG, QD
  11. PREMARIN [Concomitant]
     Dosage: 0.625 MG, QD
  12. ZYRTEC [Concomitant]
     Dosage: 10 MG, QD
  13. LIPITOR [Concomitant]
     Dosage: 40 MG, QD
  14. ASPIRIN [Concomitant]
     Dosage: 81 MG, QD

REACTIONS (21)
  - Adenocarcinoma pancreas [Fatal]
  - Metastases to liver [Unknown]
  - Metastases to lung [Unknown]
  - Respiratory failure [Unknown]
  - Anaemia [Unknown]
  - Stent placement [Unknown]
  - Early satiety [Unknown]
  - Blood glucose increased [Unknown]
  - Hypomagnesaemia [Unknown]
  - Pleural effusion [Unknown]
  - Pulmonary vascular disorder [Unknown]
  - Cardiac failure [Unknown]
  - Fluid overload [Unknown]
  - Restrictive pulmonary disease [Unknown]
  - Obstructive airways disorder [Unknown]
  - Intermittent claudication [Unknown]
  - Arthritis [Unknown]
  - Cough [Unknown]
  - Constipation [Unknown]
  - Drug ineffective [Unknown]
  - Arthralgia [Unknown]
